FAERS Safety Report 8612077-8 (Version None)
Quarter: 2012Q3

REPORT INFORMATION
  Report Type: 
  Country: None (occurrence: None)
  Receive Date: 20120822
  Receipt Date: 20120813
  Transmission Date: 20120928
  Serious: No
  Sender: FDA-Public Use
  Company Number: US-ASTRAZENECA-2012SE57162

PATIENT
  Age: 28053 Day
  Sex: Male
  Weight: 83 kg

DRUGS (3)
  1. SIMVASTATIN [Concomitant]
  2. CRESTOR [Suspect]
     Route: 048
  3. LIVALO [Concomitant]

REACTIONS (3)
  - PAIN IN EXTREMITY [None]
  - PAIN [None]
  - POLLAKIURIA [None]
